FAERS Safety Report 23805099 (Version 2)
Quarter: 2024Q2

REPORT INFORMATION
  Report Type: Spontaneous
  Country: US (occurrence: US)
  Receive Date: 20240502
  Receipt Date: 20240508
  Transmission Date: 20240716
  Serious: Yes (Hospitalization, Other)
  Sender: FDA-Public Use
  Company Number: US-GLAXOSMITHKLINE-US2024053319

PATIENT
  Age: 83 Year
  Sex: Female

DRUGS (1)
  1. TRELEGY ELLIPTA [Suspect]
     Active Substance: FLUTICASONE FUROATE\UMECLIDINIUM BROMIDE\VILANTEROL TRIFENATATE
     Indication: Asthma
     Dosage: UNK; 200/62.5/25MCG INH 30
     Dates: start: 20220101

REACTIONS (2)
  - Pneumonia [Recovering/Resolving]
  - Somnambulism [Recovering/Resolving]

NARRATIVE: CASE EVENT DATE: 20240422
